FAERS Safety Report 5382296-5 (Version None)
Quarter: 2007Q3

REPORT INFORMATION
  Report Type: 
  Country: None (occurrence: None)
  Receive Date: 20070709
  Receipt Date: 20070627
  Transmission Date: 20080115
  Serious: Yes (Other)
  Sender: FDA-Public Use
  Company Number: JP-SANOFI-SYNTHELABO-A01200707263

PATIENT
  Age: 57 Year
  Sex: Female

DRUGS (4)
  1. AMITRIPTYLINE HCL [Concomitant]
     Indication: PAIN
     Dosage: 20 MG
     Route: 048
  2. CARBAMAZEPINE [Concomitant]
     Indication: PAIN
     Dosage: 200 MG
     Route: 048
  3. PENTAZOCINE LACTATE [Suspect]
     Indication: PAIN
     Dosage: 100 MG
     Route: 048
  4. PENTAZOCINE LACTATE [Suspect]
     Route: 041

REACTIONS (2)
  - PLATELET COUNT DECREASED [None]
  - WHITE BLOOD CELL COUNT DECREASED [None]
